FAERS Safety Report 4326803-X (Version None)
Quarter: 2004Q1

REPORT INFORMATION
  Report Type: 
  Country: None (occurrence: None)
  Receive Date: 20040322
  Receipt Date: 20040220
  Transmission Date: 20041129
  Serious: Yes (Life-Threatening, Hospitalization)
  Sender: FDA-Public Use
  Company Number: PHEH2004US01631

PATIENT
  Sex: Female

DRUGS (1)
  1. ZOMETA [Suspect]
     Indication: BREAST CANCER
     Dosage: 4 MG, QMO, IV INFUSION
     Route: 042

REACTIONS (2)
  - ADVERSE DRUG REACTION [None]
  - PYREXIA [None]
